FAERS Safety Report 11844068 (Version 2)
Quarter: 2015Q4

REPORT INFORMATION
  Report Type: Spontaneous
  Country: IT (occurrence: IT)
  Receive Date: 20151217
  Receipt Date: 20151224
  Transmission Date: 20160305
  Serious: Yes (Hospitalization, Other)
  Sender: FDA-Public Use
  Company Number: IT-SUN PHARMACEUTICAL INDUSTRIES LTD-2015R1-107895

PATIENT
  Age: 30 Year
  Sex: Female

DRUGS (7)
  1. HALOPERIDOL. [Suspect]
     Active Substance: HALOPERIDOL
     Indication: BIPOLAR DISORDER
     Dosage: 4 MG, TID
     Route: 065
     Dates: start: 2005, end: 201312
  2. LORAZEPAM. [Concomitant]
     Active Substance: LORAZEPAM
     Indication: BIPOLAR DISORDER
     Dosage: 2.5 MG, QD
     Route: 065
  3. PALIPERIDONE [Suspect]
     Active Substance: PALIPERIDONE
     Indication: BIPOLAR DISORDER
     Dosage: 6 MG, QD
     Route: 065
     Dates: start: 201310, end: 201312
  4. FLUPHENAZINE [Suspect]
     Active Substance: FLUPHENAZINE
     Indication: BIPOLAR DISORDER
     Dosage: 25 MG I.M.ONCE EVERY 21 DAYS
     Route: 030
     Dates: start: 201310, end: 201312
  5. QUETIAPINE [Suspect]
     Active Substance: QUETIAPINE
     Indication: BIPOLAR DISORDER
     Dosage: 300 MG, TID
     Route: 065
     Dates: start: 2005, end: 201312
  6. CLONAZEPAM. [Concomitant]
     Active Substance: CLONAZEPAM
     Indication: BIPOLAR DISORDER
     Dosage: 1 MG, QD
     Route: 065
  7. FLUPHENAZINE [Suspect]
     Active Substance: FLUPHENAZINE
     Indication: BIPOLAR DISORDER
     Dosage: 25 MG, MONTHLY
     Route: 030
     Dates: start: 2005, end: 201312

REACTIONS (7)
  - Neuroleptic malignant syndrome [Recovered/Resolved with Sequelae]
  - Bipolar disorder [None]
  - Condition aggravated [None]
  - Haemoglobin decreased [None]
  - Blood potassium decreased [None]
  - Drug-disease interaction [Recovered/Resolved with Sequelae]
  - Multiple drug therapy [Recovered/Resolved with Sequelae]

NARRATIVE: CASE EVENT DATE: 201310
